FAERS Safety Report 21733473 (Version 1)
Quarter: 2022Q4

REPORT INFORMATION
  Report Type: Report from Study
  Country: US (occurrence: US)
  Receive Date: 20221215
  Receipt Date: 20221215
  Transmission Date: 20230112
  Serious: Yes (Other)
  Sender: FDA-Public Use
  Company Number: US-MYLANLABS-2022M1139542

PATIENT
  Age: 25 Year
  Sex: Male

DRUGS (3)
  1. GLATIRAMER [Suspect]
     Active Substance: GLATIRAMER
     Indication: Relapsing-remitting multiple sclerosis
     Dosage: UNK
     Route: 065
  2. GLATIRAMER [Suspect]
     Active Substance: GLATIRAMER
     Indication: Drug therapy
  3. CYCLOPHOSPHAMIDE [Concomitant]
     Active Substance: CYCLOPHOSPHAMIDE
     Indication: Autologous haematopoietic stem cell transplant
     Dosage: UNK
     Route: 065

REACTIONS (2)
  - Drug ineffective [Unknown]
  - Disease progression [Unknown]
